FAERS Safety Report 11702845 (Version 1)
Quarter: 2015Q4

REPORT INFORMATION
  Report Type: Spontaneous
  Country: US (occurrence: US)
  Receive Date: 20151105
  Receipt Date: 20151105
  Transmission Date: 20160304
  Serious: No
  Sender: FDA-Public Use
  Company Number: US-APOPHARMA USA, INC.-2013AP000007

PATIENT
  Age: 73 Year
  Sex: Female
  Weight: 48.99 kg

DRUGS (8)
  1. FOLIC ACID. [Concomitant]
     Active Substance: FOLIC ACID
  2. CALCITRIOL. [Concomitant]
     Active Substance: CALCITRIOL
  3. COZAAR [Concomitant]
     Active Substance: LOSARTAN POTASSIUM
  4. DILTIAZEM HCL CR [Concomitant]
  5. COREG CR [Concomitant]
     Active Substance: CARVEDILOL PHOSPHATE
  6. FERRIPROX [Suspect]
     Active Substance: DEFERIPRONE
     Indication: HAEMOCHROMATOSIS
     Route: 048
     Dates: start: 20120412, end: 20121229
  7. SYNTHROID [Concomitant]
     Active Substance: LEVOTHYROXINE SODIUM
  8. HYDROCHLOROTHIAZIDE. [Concomitant]
     Active Substance: HYDROCHLOROTHIAZIDE

REACTIONS (2)
  - Gastrooesophageal reflux disease [Recovered/Resolved]
  - Pyrexia [Recovered/Resolved]

NARRATIVE: CASE EVENT DATE: 20121229
